FAERS Safety Report 17216448 (Version 3)
Quarter: 2022Q1

REPORT INFORMATION
  Report Type: Report from Study
  Country: PL (occurrence: PL)
  Receive Date: 20191230
  Receipt Date: 20220317
  Transmission Date: 20220423
  Serious: Yes (Life-Threatening, Hospitalization, Other)
  Sender: FDA-Public Use
  Company Number: PL-002147023-NVSC2019PL065830

PATIENT
  Age: 38 Year
  Sex: Female

DRUGS (17)
  1. CLOPIDOGREL [Suspect]
     Active Substance: CLOPIDOGREL BISULFATE
     Indication: Anticoagulant therapy
     Dosage: UNK
     Route: 065
  2. CLOPIDOGREL [Suspect]
     Active Substance: CLOPIDOGREL BISULFATE
     Indication: Aneurysm repair
  3. CEFUROXIME [Suspect]
     Active Substance: CEFUROXIME
     Indication: Abscess neck
     Dosage: UNK
     Route: 065
  4. FLUCONAZOLE [Suspect]
     Active Substance: FLUCONAZOLE
     Indication: Product used for unknown indication
     Dosage: 200 MILLIGRAM, ONCE A DAY
     Route: 065
  5. ASPIRIN [Suspect]
     Active Substance: ASPIRIN
     Indication: Anticoagulant therapy
     Dosage: UNK
     Route: 065
  6. COLISTIMETHATE SODIUM [Suspect]
     Active Substance: COLISTIMETHATE SODIUM
     Indication: Product used for unknown indication
     Dosage: UNK UNK, ONCE A DAY
     Route: 065
  7. CLINDAMYCIN [Suspect]
     Active Substance: CLINDAMYCIN
     Indication: Product used for unknown indication
     Dosage: 600 MILLIGRAM, ONCE A DAY
     Route: 042
  8. CLINDAMYCIN [Suspect]
     Active Substance: CLINDAMYCIN
     Dosage: 1800 MILLIGRAM, ONCE A DAY
     Route: 042
  9. FENTANYL [Suspect]
     Active Substance: FENTANYL
     Indication: Product used for unknown indication
     Dosage: UNK UNK, ONCE A DAY
     Route: 042
  10. GENTAMICIN [Suspect]
     Active Substance: GENTAMICIN
     Indication: Anticoagulant therapy
     Dosage: UNK UNK, ONCE A DAY
     Route: 042
  11. MEROPENEM [Suspect]
     Active Substance: MEROPENEM
     Indication: Product used for unknown indication
     Dosage: 3 GRAM, ONCE A DAY
     Route: 065
  12. MEROPENEM [Suspect]
     Active Substance: MEROPENEM
     Dosage: 1 GRAM, 3 TIMES A DAY
     Route: 065
  13. OMEPRAZOLE [Suspect]
     Active Substance: OMEPRAZOLE
     Indication: Product used for unknown indication
     Dosage: UNK
     Route: 065
  14. PROPOFOL [Suspect]
     Active Substance: PROPOFOL
     Indication: Product used for unknown indication
     Dosage: UNK
     Route: 065
  15. VANCOMYCIN [Suspect]
     Active Substance: VANCOMYCIN
     Indication: Product used for unknown indication
     Dosage: 3 GRAM, ONCE A DAY
     Route: 065
  16. VANCOMYCIN [Suspect]
     Active Substance: VANCOMYCIN
     Dosage: 1 GRAM, 3 TIMES A DAY
     Route: 065
  17. NYSTATIN [Concomitant]
     Active Substance: NYSTATIN
     Indication: Product used for unknown indication
     Dosage: UNK
     Route: 065

REACTIONS (21)
  - Syncope [Recovered/Resolved]
  - Gastric ulcer [Recovered/Resolved]
  - Gastrointestinal haemorrhage [Recovered/Resolved]
  - Upper gastrointestinal haemorrhage [Unknown]
  - Multiple organ dysfunction syndrome [Recovered/Resolved]
  - Septic shock [Recovered/Resolved]
  - Acute respiratory failure [Recovered/Resolved]
  - Cellulitis [Unknown]
  - Haematemesis [Recovered/Resolved]
  - Shock haemorrhagic [Recovered/Resolved]
  - Anaemia [Recovered/Resolved]
  - Labelled drug-drug interaction medication error [Unknown]
  - Drug ineffective [Unknown]
  - Drug interaction [Recovered/Resolved]
  - Loss of consciousness [Recovered/Resolved]
  - Gastric mucosal lesion [Recovered/Resolved]
  - Abscess neck [Recovered/Resolved]
  - Sepsis syndrome [Unknown]
  - Melaena [Recovered/Resolved]
  - Asthenia [Recovered/Resolved]
  - Mobility decreased [Recovered/Resolved]
